FAERS Safety Report 24894914 (Version 3)
Quarter: 2025Q2

REPORT INFORMATION
  Report Type: Spontaneous
  Country: US (occurrence: US)
  Receive Date: 20250128
  Receipt Date: 20250522
  Transmission Date: 20250716
  Serious: Yes (Other)
  Sender: PFIZER
  Company Number: US-PFIZER INC-202500017865

PATIENT
  Age: 68 Year
  Sex: Male
  Weight: 76.644 kg

DRUGS (1)
  1. BOSULIF [Suspect]
     Active Substance: BOSUTINIB MONOHYDRATE
     Indication: Chronic myeloid leukaemia
     Dosage: 400 MG, TAKE 1 TABLET DAILY
     Route: 048

REACTIONS (4)
  - Mental impairment [Unknown]
  - Gait disturbance [Unknown]
  - Fatigue [Unknown]
  - Dizziness [Unknown]
